FAERS Safety Report 19742145 (Version 2)
Quarter: 2021Q4

REPORT INFORMATION
  Report Type: Spontaneous
  Country: US (occurrence: US)
  Receive Date: 20210825
  Receipt Date: 20211012
  Transmission Date: 20220304
  Serious: Yes (Hospitalization)
  Sender: FDA-Public Use
  Company Number: US-REGENERON PHARMACEUTICALS, INC.-2021-77378

PATIENT

DRUGS (6)
  1. PRALUENT [Suspect]
     Active Substance: ALIROCUMAB
     Indication: Hypercholesterolaemia
     Dosage: 75 MG, Q2W
     Route: 058
  2. PRALUENT [Suspect]
     Active Substance: ALIROCUMAB
     Indication: Hypercholesterolaemia
     Dosage: 75 MG, Q4W
     Route: 058
  3. PRALUENT [Suspect]
     Active Substance: ALIROCUMAB
     Dosage: 75 MG, Q6W
     Route: 058
  4. PRALUENT [Suspect]
     Active Substance: ALIROCUMAB
     Dosage: 75 MG, Q2W
     Route: 058
  5. PRALUENT [Suspect]
     Active Substance: ALIROCUMAB
     Dosage: 75 MG, Q4W
     Route: 058
  6. PRALUENT [Suspect]
     Active Substance: ALIROCUMAB
     Dosage: 75 MG, Q6W
     Route: 058

REACTIONS (3)
  - Giant cell arteritis [Not Recovered/Not Resolved]
  - Blindness [Not Recovered/Not Resolved]
  - Inappropriate schedule of product administration [Unknown]

NARRATIVE: CASE EVENT DATE: 20210101
